FAERS Safety Report 21730030 (Version 1)
Quarter: 2022Q4

REPORT INFORMATION
  Report Type: Spontaneous
  Country: NL (occurrence: NL)
  Receive Date: 20221214
  Receipt Date: 20221214
  Transmission Date: 20230113
  Serious: Yes (Other)
  Sender: FDA-Public Use
  Company Number: None

PATIENT
  Sex: Male
  Weight: 90 kg

DRUGS (2)
  1. LOSARTAN [Suspect]
     Active Substance: LOSARTAN
     Indication: Hypertension
     Dosage: 50 MILLIGRAM DAILY;  TABLET FO, BRAND NAME NOT SPECIFIED, FORM STRENGTH : 25 MG, THERAPY END DATE :
     Route: 065
     Dates: start: 20220812
  2. HYDROCHLOROTHIAZIDE [Concomitant]
     Active Substance: HYDROCHLOROTHIAZIDE
     Indication: Product used for unknown indication
     Dosage: BRAND NAME NOT SPECIFIED, FORM STRENGTH : 25 MG, THERAPY START AND END DATE : ASKU
     Route: 065

REACTIONS (2)
  - Renal impairment [Unknown]
  - Urine odour abnormal [Not Recovered/Not Resolved]
